FAERS Safety Report 9915826 (Version 3)
Quarter: 2014Q1

REPORT INFORMATION
  Report Type: Spontaneous
  Country: US (occurrence: US)
  Receive Date: 20140221
  Receipt Date: 20140320
  Transmission Date: 20141002
  Serious: Yes (Death)
  Sender: FDA-Public Use
  Company Number: US-SA-2014SA014270

PATIENT
  Age: 77 Year
  Sex: Male
  Weight: 82.5 kg

DRUGS (7)
  1. LUMIZYME [Suspect]
     Indication: GLYCOGEN STORAGE DISEASE TYPE II
     Route: 042
     Dates: start: 20140123, end: 20140206
  2. TYLENOL [Concomitant]
     Indication: PREMEDICATION
  3. DOXAZOSIN [Concomitant]
  4. FINASTERIDE [Concomitant]
  5. FLUTICASONE [Concomitant]
  6. VENTOLINE [Concomitant]
  7. VERAPAMIL [Concomitant]

REACTIONS (3)
  - Hypotension [Fatal]
  - Asthenia [Unknown]
  - Fatigue [Unknown]
